FAERS Safety Report 7435148-0 (Version None)
Quarter: 2011Q2

REPORT INFORMATION
  Report Type: 
  Country: None (occurrence: None)
  Receive Date: 20110425
  Receipt Date: 20110418
  Transmission Date: 20111010
  Serious: Yes (Death, Hospitalization, Other)
  Sender: FDA-Public Use
  Company Number: PHHY2011US30249

PATIENT
  Sex: Female

DRUGS (12)
  1. DOCUSATE [Concomitant]
  2. METOPROLOL [Concomitant]
  3. SERTRALINE [Concomitant]
  4. BACLOFEN [Concomitant]
     Dosage: 5 MG, TID
  5. VITAMIN D [Concomitant]
  6. LISINOPRIL [Concomitant]
  7. SENNA [Concomitant]
  8. RILUZOLE [Concomitant]
  9. GLEEVEC [Suspect]
     Indication: CHRONIC MYELOID LEUKAEMIA
     Dosage: 400 MG, QD
     Route: 048
     Dates: start: 20080413, end: 20100701
  10. METHICILLIN [Concomitant]
  11. ASPIRIN [Concomitant]
     Dosage: 81 MG, PER DAY
  12. AMBIEN [Concomitant]

REACTIONS (13)
  - MUSCULAR WEAKNESS [None]
  - ASTHENIA [None]
  - DYSPHONIA [None]
  - BREAST CELLULITIS [None]
  - ANTIBIOTIC RESISTANT STAPHYLOCOCCUS TEST [None]
  - CHRONIC MYELOID LEUKAEMIA [None]
  - WHITE BLOOD CELL COUNT INCREASED [None]
  - DYSPHAGIA [None]
  - PLATELET COUNT INCREASED [None]
  - DEATH [None]
  - BREAST PAIN [None]
  - AMYOTROPHIC LATERAL SCLEROSIS [None]
  - BREAST ABSCESS [None]
